FAERS Safety Report 9189411 (Version 1)
Quarter: 2013Q1

REPORT INFORMATION
  Report Type: Spontaneous
  Country: US (occurrence: None)
  Receive Date: 20130322
  Receipt Date: 20130322
  Transmission Date: 20140127
  Serious: Yes (Other)
  Sender: FDA-Public Use
  Company Number: None

PATIENT
  Sex: Female
  Weight: 74.84 kg

DRUGS (2)
  1. LAMICTAL [Suspect]
     Indication: DEPRESSION
     Dosage: 25MG DAILY PO
     Route: 048
     Dates: start: 20130301, end: 20130306
  2. LAMICTAL [Suspect]
     Indication: ANXIETY
     Dosage: 25MG DAILY PO
     Route: 048
     Dates: start: 20130301, end: 20130306

REACTIONS (16)
  - Malaise [None]
  - Vomiting [None]
  - Headache [None]
  - Photophobia [None]
  - Musculoskeletal stiffness [None]
  - Neck pain [None]
  - Confusional state [None]
  - Chills [None]
  - Tremor [None]
  - Dizziness [None]
  - Blood pressure increased [None]
  - Erythema [None]
  - Erythema [None]
  - Vertigo [None]
  - Muscle twitching [None]
  - Hypersensitivity [None]
